FAERS Safety Report 5958008-0 (Version None)
Quarter: 2008Q4

REPORT INFORMATION
  Report Type: 
  Country: None (occurrence: None)
  Receive Date: 20081119
  Receipt Date: 20081110
  Transmission Date: 20090506
  Serious: Yes (Other)
  Sender: FDA-Public Use
  Company Number: PHHY2008CA27995

PATIENT

DRUGS (2)
  1. DIOVAN [Suspect]
     Dosage: 80 MG, QD
  2. BETA BLOCKING AGENTS [Concomitant]
     Dosage: UNK

REACTIONS (2)
  - AORTIC VALVE REPLACEMENT [None]
  - CORONARY ARTERY BYPASS [None]
